FAERS Safety Report 7379886-7 (Version None)
Quarter: 2011Q1

REPORT INFORMATION
  Report Type: 
  Country: None (occurrence: None)
  Receive Date: 20110329
  Receipt Date: 20110318
  Transmission Date: 20110831
  Serious: Yes (Hospitalization)
  Sender: FDA-Public Use
  Company Number: CA-JNJFOC-20110305607

PATIENT
  Age: 70 Year
  Sex: Male
  Weight: 96.4 kg

DRUGS (15)
  1. RAN-PANTOPRAZOLE [Concomitant]
     Indication: GASTROINTESTINAL DISORDER THERAPY
     Route: 048
  2. PLAQUENIL [Concomitant]
     Indication: POLYARTHRITIS
  3. COUMADIN [Concomitant]
     Indication: ATRIAL FIBRILLATION
     Route: 048
  4. SIMPONI [Suspect]
     Indication: RHEUMATOID ARTHRITIS
     Route: 058
  5. PMS SOTALOL [Concomitant]
     Indication: ARRHYTHMIA
     Route: 048
  6. NAPROSYN [Concomitant]
     Indication: POLYARTHRITIS
     Route: 048
  7. NORVASC [Concomitant]
     Indication: HYPERTENSION
     Route: 048
  8. METHOTREXATE [Concomitant]
     Indication: POLYARTHRITIS
     Route: 048
  9. PMS SOTALOL [Concomitant]
     Route: 048
  10. LIPITOR [Concomitant]
     Indication: HYPERCHOLESTEROLAEMIA
     Route: 048
  11. DIOVAN HCT [Concomitant]
     Route: 048
  12. FOLIC ACID [Concomitant]
     Indication: POLYARTHRITIS
  13. DIOVAN HCT [Concomitant]
     Indication: HYPERTENSION
     Route: 048
  14. IMDUR [Concomitant]
     Indication: ANGINA PECTORIS
     Route: 048
  15. PLAQUENIL [Concomitant]

REACTIONS (1)
  - LOBAR PNEUMONIA [None]
